FAERS Safety Report 14588764 (Version 4)
Quarter: 2018Q2

REPORT INFORMATION
  Report Type: Spontaneous
  Country: US (occurrence: US)
  Receive Date: 20180301
  Receipt Date: 20180615
  Transmission Date: 20180711
  Serious: Yes (Hospitalization, Other)
  Sender: FDA-Public Use
  Company Number: US-ACTELION-A-NJ2018-168215

PATIENT
  Age: 36 Year
  Sex: Female

DRUGS (4)
  1. UPTRAVI [Suspect]
     Active Substance: SELEXIPAG
     Indication: PULMONARY HYPERTENSION
     Dosage: UNK
     Route: 048
  2. AMBRISENTAN [Suspect]
     Active Substance: AMBRISENTAN
     Indication: PULMONARY HYPERTENSION
     Dosage: 10 MG, QD
     Route: 065
     Dates: start: 20170404
  3. UPTRAVI [Suspect]
     Active Substance: SELEXIPAG
     Dosage: 800 MCG, BID
     Route: 048
  4. ADCIRCA [Suspect]
     Active Substance: TADALAFIL
     Indication: PULMONARY HYPERTENSION
     Dosage: 40 MG, QD
     Route: 065
     Dates: start: 20180116

REACTIONS (24)
  - Mental disorder [Not Recovered/Not Resolved]
  - Intentional product use issue [Not Recovered/Not Resolved]
  - Fear [Unknown]
  - Pulmonary pain [Unknown]
  - Headache [Unknown]
  - Pneumonia [Not Recovered/Not Resolved]
  - Amnesia [Unknown]
  - Depression [Unknown]
  - Swelling [Unknown]
  - Blood potassium abnormal [Unknown]
  - Nausea [Unknown]
  - Pain in jaw [Unknown]
  - Hypotension [Unknown]
  - Pleurisy [Not Recovered/Not Resolved]
  - Pain [Unknown]
  - Insomnia [Unknown]
  - Heart rate increased [Unknown]
  - Malaise [Unknown]
  - Chest pain [Unknown]
  - Blood potassium decreased [Unknown]
  - Dermatitis contact [Unknown]
  - Dementia [Unknown]
  - Dyspnoea [Unknown]
  - Fatigue [Unknown]

NARRATIVE: CASE EVENT DATE: 20180102
